FAERS Safety Report 5375882-X (Version None)
Quarter: 2007Q3

REPORT INFORMATION
  Report Type: 
  Country: None (occurrence: None)
  Receive Date: 20070702
  Receipt Date: 20070626
  Transmission Date: 20080115
  Serious: Yes (Death, Other)
  Sender: FDA-Public Use
  Company Number: PHBS2007JP10186

PATIENT
  Age: 70 Year
  Sex: Male
  Weight: 60 kg

DRUGS (50)
  1. VOLTAREN [Suspect]
     Indication: WOUND COMPLICATION
     Dosage: 25 MG/DAY
     Route: 054
     Dates: start: 20060824, end: 20060824
  2. VOLTAREN [Suspect]
     Dosage: 25 MG/DAY
     Route: 054
     Dates: start: 20060904, end: 20060923
  3. VOLTAREN [Suspect]
     Dosage: 50 MG/DAY
     Route: 054
     Dates: start: 20060917, end: 20060917
  4. VOLTAREN [Suspect]
     Dosage: 50 MG/DAY
     Route: 054
     Dates: start: 20060920, end: 20060920
  5. VOLTAREN [Suspect]
     Dosage: 50 MG/DAY
     Route: 054
     Dates: start: 20060921, end: 20060921
  6. VOLTAREN [Suspect]
     Dosage: 50 MG/DAY
     Route: 054
     Dates: start: 20060922, end: 20060922
  7. TEGRETOL [Suspect]
     Indication: WOUND COMPLICATION
     Dosage: 100 MG/DAY
     Route: 048
     Dates: start: 20060922, end: 20060923
  8. AMOBAN [Concomitant]
     Indication: INSOMNIA
     Dosage: 7.5 MG/DAY
     Route: 048
     Dates: start: 20060920, end: 20060925
  9. ZOLPIDEM [Concomitant]
     Indication: INSOMNIA
     Dosage: 5 MG/DAY
     Route: 048
     Dates: start: 20060822, end: 20060923
  10. ROHYPNOL [Concomitant]
     Indication: INSOMNIA
     Dosage: 1 MG/DAY
     Route: 048
     Dates: start: 20060913, end: 20060926
  11. UBRETID [Concomitant]
     Indication: NEUROGENIC BLADDER
     Dosage: 10 MG/DAY
     Route: 048
     Dates: start: 20060908, end: 20060929
  12. SPELEAR [Concomitant]
     Indication: SPUTUM RETENTION
     Dosage: 1200 MG/DAY
     Route: 048
     Dates: start: 20060914, end: 20060924
  13. SELBEX [Concomitant]
     Indication: GASTRITIS
     Dosage: 50 MG/DAY
     Route: 048
     Dates: start: 20060924, end: 20060924
  14. SENNOSIDE [Concomitant]
     Indication: CONSTIPATION
     Dosage: 24 MG/DAY
     Route: 048
     Dates: start: 20060822, end: 20060822
  15. TAKEPRON [Concomitant]
     Indication: GASTRIC ULCER
     Dosage: 30 MG/DAY
     Route: 048
     Dates: start: 20060824, end: 20060929
  16. NAPROXEN [Concomitant]
     Indication: PYREXIA
     Dosage: 300 MG/DAY
     Route: 048
     Dates: start: 20060920, end: 20060926
  17. ASPIRIN [Concomitant]
     Indication: CEREBRAL INFARCTION
     Dosage: 100 MG/DAY
     Route: 048
     Dates: start: 20060830, end: 20060930
  18. POLARAMINE [Concomitant]
     Indication: PRURITUS
     Dosage: 2 MG/DAY
     Route: 048
     Dates: start: 20060923, end: 20060923
  19. AMINOFLUID [Concomitant]
     Indication: FLUID REPLACEMENT
     Dosage: 500 ML/DAY
     Route: 042
     Dates: start: 20060925, end: 20060926
  20. OMEPRAL [Concomitant]
     Indication: STRESS ULCER
     Dosage: 40 MG/DAY
     Route: 042
     Dates: start: 20060824, end: 20060830
  21. CATACLOT [Concomitant]
     Indication: CEREBRAL INFARCTION
     Dosage: 80 MG/DAY
     Route: 042
     Dates: start: 20060824, end: 20060824
  22. SOLU-MEDROL [Concomitant]
     Indication: ASTHMA
     Dosage: 125 MG/DAY
     Route: 042
     Dates: start: 20060920, end: 20060921
  23. SOLDEM 3A [Concomitant]
     Indication: FLUID REPLACEMENT
     Dosage: 2000 ML/DAY
     Route: 042
     Dates: start: 20060823, end: 20060823
  24. MULTIVITAMIN ADDITIVE [Concomitant]
     Indication: VITAMIN SUPPLEMENTATION
     Dosage: 1 DF/DAY
     Route: 042
     Dates: start: 20060824, end: 20060830
  25. HEPARIN SODIUM [Concomitant]
     Indication: ANTICOAGULANT THERAPY
     Route: 042
     Dates: start: 20060824, end: 20060827
  26. PACIL [Concomitant]
     Indication: INFECTION
     Dosage: 1000 MG/DAY
     Route: 042
     Dates: start: 20060920, end: 20060920
  27. PANSPORIN [Concomitant]
     Indication: INFECTION PROPHYLAXIS
     Dosage: 1 G/DAY
     Route: 042
     Dates: start: 20060824, end: 20060826
  28. FINIBAX [Concomitant]
     Indication: INFECTION
     Dosage: 0.5 G/DAY
     Route: 042
     Dates: start: 20060919, end: 20060920
  29. FLUMARIN [Concomitant]
     Indication: INFECTION
     Dosage: 2 G/DAY
     Route: 042
     Dates: start: 20060917, end: 20060917
  30. PERDIPINE [Concomitant]
     Indication: HYPERTENSION
     Route: 042
     Dates: start: 20060824, end: 20060824
  31. POTACOL-R [Concomitant]
     Indication: VOLUME BLOOD
     Dosage: 500 ML/DAY
     Route: 042
     Dates: start: 20060824, end: 20060911
  32. RADICUT [Concomitant]
     Indication: CEREBRAL INFARCTION
     Dosage: 60 MG/DAY
     Route: 042
     Dates: start: 20060824, end: 20060903
  33. NEO-MINOPHAGEN C [Concomitant]
     Indication: HEPATIC FUNCTION ABNORMAL
     Route: 042
     Dates: start: 20060901, end: 20061012
  34. LOW MOLECULAR DEXTRAN L [Concomitant]
     Dosage: 250 ML/DAY
     Route: 042
     Dates: start: 20060824, end: 20060825
  35. BISOLVON [Concomitant]
     Indication: SPUTUM RETENTION
     Route: 048
     Dates: start: 20060824, end: 20060904
  36. MAGMITT KENEI [Concomitant]
     Indication: CONSTIPATION
     Dosage: 990 MG/DAY
     Route: 048
     Dates: start: 20060829, end: 20060926
  37. CERCINE [Concomitant]
     Indication: CONVULSION PROPHYLAXIS
     Dosage: 2 MG/DAY
     Route: 048
     Dates: start: 20060924, end: 20060926
  38. PHENOBARBITAL TAB [Concomitant]
     Indication: CONVULSION PROPHYLAXIS
     Dosage: 200 MG/DAY
     Route: 048
     Dates: start: 20060828, end: 20060923
  39. MOBIC [Concomitant]
     Indication: WOUND COMPLICATION
     Dosage: 10 MG/DAY
     Route: 048
     Dates: start: 20060824, end: 20060824
  40. LOXONIN [Concomitant]
     Indication: INTERCOSTAL NEURALGIA
     Dosage: 180 MG/DAY
     Route: 048
     Dates: start: 20060918, end: 20060924
  41. DISTILLED WATER [Concomitant]
     Indication: COUGH
     Dates: start: 20060930, end: 20060930
  42. KETOPROFEN [Concomitant]
     Indication: WOUND COMPLICATION
     Route: 061
     Dates: start: 20060917
  43. LAXOBERON [Concomitant]
     Indication: CONSTIPATION
     Route: 061
     Dates: start: 20060902
  44. RINDERON-VG [Concomitant]
     Indication: RASH
     Route: 061
     Dates: start: 20060918
  45. WAKOBITAL [Concomitant]
     Indication: CONVULSION PROPHYLAXIS
     Dosage: 100 MG/DAY
     Route: 054
     Dates: start: 20060825, end: 20060828
  46. SERUM ALBUMIN HUMAN [Concomitant]
     Indication: SHOCK
     Dosage: 100 ML/DAY
     Route: 042
     Dates: start: 20060824, end: 20060824
  47. HUMULIN 70/30 [Concomitant]
     Indication: HYPERGLYCAEMIA
     Dosage: 1500 DF/DAY
     Route: 042
     Dates: start: 20060823, end: 20060824
  48. ROPIVACAINE [Concomitant]
     Indication: WOUND COMPLICATION
     Dosage: 200 MG/DAY
     Route: 042
     Dates: start: 20060824, end: 20060826
  49. AMINOTRIPA 1 [Concomitant]
     Indication: PARENTERAL NUTRITION
     Dosage: 1700 ML/DAY
     Route: 042
     Dates: start: 20060824, end: 20060825
  50. AMINOTRIPA 2 [Concomitant]
     Indication: PARENTERAL NUTRITION
     Dosage: 1800 ML/DAY
     Route: 042
     Dates: start: 20060825, end: 20060830

REACTIONS (39)
  - AGRANULOCYTOSIS [None]
  - ALANINE AMINOTRANSFERASE INCREASED [None]
  - ASPARTATE AMINOTRANSFERASE INCREASED [None]
  - BLOOD BILIRUBIN INCREASED [None]
  - BLOOD LACTATE DEHYDROGENASE INCREASED [None]
  - C-REACTIVE PROTEIN INCREASED [None]
  - CARDIAC ARREST [None]
  - CEREBRAL INFARCTION [None]
  - CULTURE URINE POSITIVE [None]
  - DEPRESSED LEVEL OF CONSCIOUSNESS [None]
  - DERMATITIS [None]
  - DRUG ERUPTION [None]
  - ERYTHEMA ANNULARE [None]
  - HAEMATOCHEZIA [None]
  - HAEMORRHOIDS [None]
  - HEMIPLEGIA [None]
  - INFECTION [None]
  - INSOMNIA [None]
  - INTERCOSTAL NEURALGIA [None]
  - LIP PAIN [None]
  - LIP ULCERATION [None]
  - LIVER DISORDER [None]
  - LUNG NEOPLASM MALIGNANT [None]
  - MUSCULAR WEAKNESS [None]
  - OCULOMUCOCUTANEOUS SYNDROME [None]
  - PLATELET COUNT DECREASED [None]
  - PLEURAL EFFUSION [None]
  - PLEURISY [None]
  - POST PROCEDURAL COMPLICATION [None]
  - PRODUCTIVE COUGH [None]
  - PRURITUS [None]
  - PYREXIA [None]
  - RASH [None]
  - SEPSIS [None]
  - SHOCK [None]
  - SPUTUM RETENTION [None]
  - STAPHYLOCOCCAL INFECTION [None]
  - WHITE BLOOD CELL COUNT DECREASED [None]
  - WHITE BLOOD CELL COUNT INCREASED [None]
